FAERS Safety Report 9246523 (Version 2)
Quarter: 2013Q2

REPORT INFORMATION
  Report Type: Report from Study
  Country: US (occurrence: US)
  Receive Date: 20130422
  Receipt Date: 20130422
  Transmission Date: 20140414
  Serious: No
  Sender: FDA-Public Use
  Company Number: US-ABBOTT-12P-163-1002388-00

PATIENT
  Age: 5 Year
  Sex: Female

DRUGS (2)
  1. LEUPROLIDE ACETATE DEPOT (ABBOTT) [Suspect]
     Indication: PRECOCIOUS PUBERTY
     Dates: start: 20120229
  2. ALLEGRA [Concomitant]
     Indication: SEASONAL ALLERGY

REACTIONS (3)
  - Injection site mass [Recovered/Resolved]
  - Muscle haemorrhage [Recovered/Resolved]
  - Sinusitis [Not Recovered/Not Resolved]
